FAERS Safety Report 8168496-X (Version None)
Quarter: 2012Q1

REPORT INFORMATION
  Report Type: 
  Country: None (occurrence: None)
  Receive Date: 20120103
  Receipt Date: 20111031
  Transmission Date: 20120608
  Serious: No
  Sender: FDA-Public Use
  Company Number: AE-2011-002917

PATIENT
  Age: 30 Year
  Sex: Male
  Weight: 129.2752 kg

DRUGS (5)
  1. INTERFERON (PEGINTERFERON ALFA-2A) [Concomitant]
  2. RIBAVIRIN [Concomitant]
  3. INCIVEK [Suspect]
     Dosage: 2250 MG (750 MG, 1 IN 8 HR), ORAL
     Route: 048
     Dates: start: 20111022
  4. ASCORBIC ACID [Concomitant]
  5. FISH OIL (FISH OIL) [Concomitant]

REACTIONS (1)
  - PROCTALGIA [None]
